FAERS Safety Report 8296429-4 (Version None)
Quarter: 2012Q2

REPORT INFORMATION
  Report Type: 
  Country: None (occurrence: None)
  Receive Date: 20120418
  Receipt Date: 20120404
  Transmission Date: 20120825
  Serious: Yes (Death, Hospitalization)
  Sender: FDA-Public Use
  Company Number: IT-CELGENEUS-083-21880-12011023

PATIENT
  Sex: Female

DRUGS (3)
  1. REVLIMID [Suspect]
     Indication: MULTIPLE MYELOMA
     Dosage: 15 MILLIGRAM
     Route: 048
     Dates: start: 20110423, end: 20110502
  2. RED BLOOD CELLS [Concomitant]
     Route: 041
  3. PREDNISONE TAB [Concomitant]
     Indication: MULTIPLE MYELOMA
     Dosage: 12.5 MILLIGRAM
     Route: 048
     Dates: start: 20110423

REACTIONS (2)
  - RESPIRATORY FAILURE [None]
  - PNEUMONIA [None]
